FAERS Safety Report 7232818-4 (Version None)
Quarter: 2011Q1

REPORT INFORMATION
  Report Type: 
  Country: None (occurrence: None)
  Receive Date: 20110110
  Receipt Date: 20110104
  Transmission Date: 20110831
  Serious: Yes (Other)
  Sender: FDA-Public Use
  Company Number: 017769

PATIENT
  Sex: Male
  Weight: 43 kg

DRUGS (5)
  1. DURAGESIC-100 [Concomitant]
  2. KEPPRA [Suspect]
     Indication: EPILEPSY
     Dosage: (750 MG, DAILY DOSE: 250MG + 500MG ORAL)
     Route: 048
     Dates: start: 20100820, end: 20100825
  3. XATRAL /00975301/ [Concomitant]
  4. SONDALIS HP [Concomitant]
  5. MOTILIUM /00498201/ [Concomitant]

REACTIONS (2)
  - CYTOLYTIC HEPATITIS [None]
  - CHOLESTASIS [None]
